FAERS Safety Report 5628793-6 (Version None)
Quarter: 2008Q1

REPORT INFORMATION
  Report Type: 
  Country: None (occurrence: None)
  Receive Date: 20080214
  Receipt Date: 20080201
  Transmission Date: 20080703
  Serious: Yes (Other)
  Sender: FDA-Public Use
  Company Number: 2008BI002958

PATIENT
  Sex: Female

DRUGS (1)
  1. TYSABRI [Suspect]
     Indication: MULTIPLE SCLEROSIS
     Dosage: 300 MG;QM;IV
     Route: 042
     Dates: start: 20070531

REACTIONS (6)
  - CERVICAL VERTEBRAL FRACTURE [None]
  - DEPRESSION [None]
  - FALL [None]
  - LOWER LIMB FRACTURE [None]
  - MALAISE [None]
  - NASOPHARYNGITIS [None]
